FAERS Safety Report 25088328 (Version 1)
Quarter: 2025Q1

REPORT INFORMATION
  Report Type: Spontaneous
  Country: BG (occurrence: BG)
  Receive Date: 20250318
  Receipt Date: 20250318
  Transmission Date: 20250408
  Serious: Yes (Hospitalization)
  Sender: CASPER PHARMA
  Company Number: BG-CASPERPHARMA-BG-2025RISLIT00133

PATIENT
  Age: 64 Year
  Sex: Female

DRUGS (7)
  1. CHLORTHALIDONE [Suspect]
     Active Substance: CHLORTHALIDONE
     Indication: Hypertension
     Route: 065
     Dates: start: 202304
  2. VALSARTAN [Suspect]
     Active Substance: VALSARTAN
     Indication: Hypertension
     Route: 065
     Dates: start: 202304
  3. SPIRONOLACTONE [Suspect]
     Active Substance: SPIRONOLACTONE
     Indication: Hypertension
     Route: 065
     Dates: start: 202304
  4. BISOPROLOL FUMARATE [Suspect]
     Active Substance: BISOPROLOL FUMARATE
     Indication: Hypertension
     Route: 065
     Dates: start: 202304
  5. CLOPIDOGREL [Concomitant]
     Active Substance: CLOPIDOGREL BISULFATE
     Route: 065
     Dates: start: 202304
  6. BETAHISTINE [Concomitant]
     Active Substance: BETAHISTINE
     Route: 065
     Dates: start: 202304
  7. ROSUVASTATIN [Concomitant]
     Active Substance: ROSUVASTATIN
     Route: 065
     Dates: start: 202304

REACTIONS (12)
  - Lichen planopilaris [Recovering/Resolving]
  - Escherichia urinary tract infection [Recovering/Resolving]
  - Periodontitis [Recovering/Resolving]
  - Bacteriuria [Recovering/Resolving]
  - Leukocyturia [Recovering/Resolving]
  - Haematuria [Recovering/Resolving]
  - Chronic papillomatous dermatitis [Recovering/Resolving]
  - Alopecia scarring [Recovering/Resolving]
  - Skin exfoliation [Recovering/Resolving]
  - Hypotrichosis [Recovering/Resolving]
  - Acanthosis [Recovering/Resolving]
  - Hyperkeratosis [Recovering/Resolving]
